FAERS Safety Report 18497144 (Version 1)
Quarter: 2020Q4

REPORT INFORMATION
  Report Type: Spontaneous
  Country: GB (occurrence: GB)
  Receive Date: 20201112
  Receipt Date: 20201112
  Transmission Date: 20210114
  Serious: Yes (Life-Threatening, Hospitalization)
  Sender: FDA-Public Use
  Company Number: GB-ROCHE-2712412

PATIENT
  Age: 41 Year
  Sex: Male

DRUGS (1)
  1. ALTEPLASE. [Suspect]
     Active Substance: ALTEPLASE
     Indication: LACUNAR INFARCTION
     Dosage: AS INJECTION AND REMAINDER AS INFUSION FREQUENCY: 1, FREQUENCY UNIT: 809
     Route: 042
     Dates: start: 20201012, end: 20201012

REACTIONS (4)
  - Depressed level of consciousness [Unknown]
  - Basal ganglia haemorrhage [Unknown]
  - Cerebral haemorrhage [Recovering/Resolving]
  - Condition aggravated [Unknown]

NARRATIVE: CASE EVENT DATE: 20201012
